FAERS Safety Report 10367606 (Version 1)
Quarter: 2014Q3

REPORT INFORMATION
  Report Type: Spontaneous
  Country: US (occurrence: None)
  Receive Date: 20140806
  Receipt Date: 20140806
  Transmission Date: 20150326
  Serious: Yes (Other)
  Sender: FDA-Public Use
  Company Number: None

PATIENT
  Age: 65 Year
  Sex: Male
  Weight: 88 kg

DRUGS (1)
  1. ESZOPICLONE. [Suspect]
     Active Substance: ESZOPICLONE
     Indication: INSOMNIA
     Dosage: 1 PILL PRIOR TO BED ONCE DAILY
     Dates: start: 20140726, end: 20140802

REACTIONS (6)
  - No therapeutic response [None]
  - Constipation [None]
  - Product commingling [None]
  - Diarrhoea [None]
  - Drug effect variable [None]
  - Drug dose omission [None]

NARRATIVE: CASE EVENT DATE: 20140805
